FAERS Safety Report 20326640 (Version 1)
Quarter: 2022Q1

REPORT INFORMATION
  Report Type: Spontaneous
  Country: IT (occurrence: None)
  Receive Date: 20220112
  Receipt Date: 20220112
  Transmission Date: 20220423
  Serious: Yes (Life-Threatening, Hospitalization, Other)
  Sender: FDA-Public Use
  Company Number: IT-MLMSERVICE-20211222-3281521-1

PATIENT
  Age: 51 Year
  Sex: Male

DRUGS (10)
  1. METHYLPREDNISOLONE [Suspect]
     Active Substance: METHYLPREDNISOLONE
     Indication: Product used for unknown indication
     Route: 042
  2. METHYLPREDNISOLONE [Suspect]
     Active Substance: METHYLPREDNISOLONE
     Route: 042
  3. PREDNISONE [Suspect]
     Active Substance: PREDNISONE
     Indication: Crohn^s disease
     Dosage: 25 MG, LONG-TERM USE
     Route: 048
  4. MESALAMINE [Concomitant]
     Active Substance: MESALAMINE
     Indication: Product used for unknown indication
     Route: 048
  5. SALINE [Concomitant]
     Active Substance: SODIUM CHLORIDE
     Indication: Product used for unknown indication
     Dosage: UNKNOWN
     Route: 042
  6. PAROXETINE [Concomitant]
     Active Substance: PAROXETINE
     Indication: Depression
     Dosage: UNKNOWN
     Route: 065
  7. LEVOFLOXACIN [Concomitant]
     Active Substance: LEVOFLOXACIN
     Indication: Product used for unknown indication
     Route: 065
  8. PANTOPRAZOLE [Concomitant]
     Active Substance: PANTOPRAZOLE
     Indication: Product used for unknown indication
     Route: 065
  9. METRONIDAZOLE [Concomitant]
     Active Substance: METRONIDAZOLE
     Indication: Product used for unknown indication
     Route: 065
  10. OLMESARTAN MEDOXOMIL AND AMLODIPINE [Concomitant]
     Indication: Hypertension
     Dosage: DOSE DOUBLED
     Route: 065

REACTIONS (13)
  - Respiratory failure [Recovering/Resolving]
  - Cushing^s syndrome [Recovering/Resolving]
  - Hypertension [Recovering/Resolving]
  - Staphylococcal infection [Recovering/Resolving]
  - Respiratory acidosis [Recovering/Resolving]
  - Metabolic acidosis [Recovering/Resolving]
  - Haemoglobin decreased [Recovering/Resolving]
  - Candida infection [Recovering/Resolving]
  - Acute kidney injury [Recovering/Resolving]
  - Adrenocortical insufficiency acute [Recovering/Resolving]
  - Septic shock [Recovering/Resolving]
  - Adrenal insufficiency [Recovering/Resolving]
  - Respiratory alkalosis [Recovering/Resolving]
